FAERS Safety Report 16190177 (Version 1)
Quarter: 2019Q2

REPORT INFORMATION
  Report Type: Spontaneous
  Country: US (occurrence: US)
  Receive Date: 20190412
  Receipt Date: 20190412
  Transmission Date: 20190711
  Serious: Yes (Other)
  Sender: FDA-Public Use
  Company Number: US-MYLANLABS-2019M1031901

PATIENT
  Age: 50 Year
  Sex: Male

DRUGS (1)
  1. ZONISAMIDE. [Suspect]
     Active Substance: ZONISAMIDE
     Indication: SEIZURE
     Dosage: 200 MILLIGRAM, HS
     Route: 065

REACTIONS (2)
  - Seizure [Unknown]
  - Condition aggravated [Unknown]
